FAERS Safety Report 8508318-8 (Version None)
Quarter: 2012Q3

REPORT INFORMATION
  Report Type: 
  Country: None (occurrence: None)
  Receive Date: 20120713
  Receipt Date: 20120704
  Transmission Date: 20120928
  Serious: Yes (Hospitalization)
  Sender: FDA-Public Use
  Company Number: JP-VERTEX PHARMACEUTICALS INC.-AE-2012-008842

PATIENT
  Age: 57 Year
  Sex: Male

DRUGS (7)
  1. REBETOL [Concomitant]
     Route: 048
     Dates: start: 20120613, end: 20120621
  2. REBETOL [Concomitant]
     Indication: HEPATITIS C
     Route: 048
     Dates: start: 20120606, end: 20120608
  3. MOTILIUM [Concomitant]
     Route: 048
  4. TELAVIC (TELAPREVIR) [Suspect]
     Indication: HEPATITIS C
     Route: 048
     Dates: start: 20120606, end: 20120607
  5. LANSOPRAZOLE [Concomitant]
     Route: 048
  6. PEGINTERFERON ALFA-2B [Concomitant]
     Indication: HEPATITIS C
     Route: 058
     Dates: start: 20120606, end: 20120621
  7. LYRICA [Concomitant]
     Route: 048

REACTIONS (2)
  - RASH [None]
  - PLATELET COUNT DECREASED [None]
